FAERS Safety Report 16112663 (Version 1)
Quarter: 2019Q1

REPORT INFORMATION
  Report Type: Spontaneous
  Country: FR (occurrence: FR)
  Receive Date: 20190325
  Receipt Date: 20190325
  Transmission Date: 20190418
  Serious: Yes (Hospitalization, Other)
  Sender: FDA-Public Use
  Company Number: FR-SA-2006-00027

PATIENT
  Age: 74 Year
  Sex: Male

DRUGS (4)
  1. IMMUCYST [Suspect]
     Active Substance: BACILLUS CALMETTE-GUERIN SUBSTRAIN CONNAUGHT LIVE ANTIGEN
     Indication: BLADDER NEOPLASM
     Dosage: UNK
     Route: 043
     Dates: start: 20050927
  2. BECOTIDE [Concomitant]
     Active Substance: BECLOMETHASONE DIPROPIONATE
     Indication: PRODUCT USED FOR UNKNOWN INDICATION
     Dosage: UNK
  3. MOPRAL [OMEPRAZOLE] [Concomitant]
     Indication: PRODUCT USED FOR UNKNOWN INDICATION
  4. FORADIL [Concomitant]
     Active Substance: FORMOTEROL FUMARATE
     Indication: PRODUCT USED FOR UNKNOWN INDICATION

REACTIONS (10)
  - Anaemia [Recovered/Resolved with Sequelae]
  - Hypotension [Recovered/Resolved with Sequelae]
  - Granulomatous liver disease [Recovered/Resolved with Sequelae]
  - Disseminated Bacillus Calmette-Guerin infection [Recovered/Resolved with Sequelae]
  - Hyperthermia [Recovered/Resolved with Sequelae]
  - Cholestasis [Recovered/Resolved with Sequelae]
  - Asthma [Recovered/Resolved]
  - Hepatosplenomegaly [Recovered/Resolved with Sequelae]
  - Jaundice [Recovered/Resolved with Sequelae]
  - Septic shock [Recovered/Resolved]

NARRATIVE: CASE EVENT DATE: 20050929
